FAERS Safety Report 7374845-2 (Version None)
Quarter: 2011Q1

REPORT INFORMATION
  Report Type: 
  Country: None (occurrence: None)
  Receive Date: 20110325
  Receipt Date: 20110316
  Transmission Date: 20110831
  Serious: Yes (Other)
  Sender: FDA-Public Use
  Company Number: US-JNJFOC-20110307581

PATIENT
  Sex: Female
  Weight: 83.92 kg

DRUGS (4)
  1. XANAX [Concomitant]
     Indication: ANXIETY
     Route: 048
  2. NUCYNTA [Suspect]
     Indication: BACK PAIN
     Route: 048
  3. ACIPHEX [Suspect]
     Indication: GASTROOESOPHAGEAL REFLUX DISEASE
     Dosage: AS NEEDED
     Route: 048
  4. NAPROXEN [Concomitant]
     Indication: PAIN
     Route: 048

REACTIONS (5)
  - MIGRAINE [None]
  - CONVULSION [None]
  - CONTUSION [None]
  - TONGUE DISORDER [None]
  - NERVOUS SYSTEM DISORDER [None]
